FAERS Safety Report 12131696 (Version 2)
Quarter: 2016Q1

REPORT INFORMATION
  Report Type: Spontaneous
  Country: ES (occurrence: ES)
  Receive Date: 20160301
  Receipt Date: 20160323
  Transmission Date: 20160526
  Serious: Yes (Death, Other)
  Sender: FDA-Public Use
  Company Number: ES-ASTELLAS-2016US005737

PATIENT
  Age: 61 Year
  Sex: Male

DRUGS (2)
  1. MYCOPHENOLATE MOFETIL. [Suspect]
     Active Substance: MYCOPHENOLATE MOFETIL
     Indication: RENAL TRANSPLANT
     Route: 048
  2. ADVAGRAF [Suspect]
     Active Substance: TACROLIMUS
     Indication: RENAL TRANSPLANT
     Dosage: 3 MG, DAILY
     Route: 065

REACTIONS (3)
  - Respiratory failure [Fatal]
  - Human herpesvirus 8 infection [Fatal]
  - Kaposi^s sarcoma [Fatal]

NARRATIVE: CASE EVENT DATE: 2012
